FAERS Safety Report 21199743 (Version 3)
Quarter: 2022Q3

REPORT INFORMATION
  Report Type: Spontaneous
  Country: JP (occurrence: JP)
  Receive Date: 20220811
  Receipt Date: 20220912
  Transmission Date: 20221027
  Serious: Yes (Death, Other)
  Sender: FDA-Public Use
  Company Number: JP-MSD-M2021-10581

PATIENT
  Age: 83 Year
  Sex: Male

DRUGS (1)
  1. KEYTRUDA [Suspect]
     Active Substance: PEMBROLIZUMAB
     Indication: Tongue carcinoma stage IV
     Dosage: 200 MILLIGRAM, Q3W
     Route: 041
     Dates: start: 20210119, end: 20210511

REACTIONS (3)
  - Immune-mediated hyperthyroidism [Recovered/Resolved]
  - Malignant neoplasm progression [Fatal]
  - Skin disorder [Recovered/Resolved]

NARRATIVE: CASE EVENT DATE: 20210101
